FAERS Safety Report 23137701 (Version 1)
Quarter: 2023Q4

REPORT INFORMATION
  Report Type: Spontaneous
  Country: US (occurrence: None)
  Receive Date: 20231030
  Receipt Date: 20231030
  Transmission Date: 20240110
  Serious: Yes (Disabling, Other)
  Sender: FDA-Public Use
  Company Number: None

PATIENT
  Age: 69 Year
  Sex: Male
  Weight: 82.1 kg

DRUGS (3)
  1. LUBRICANT EYE DROPS NOS [Suspect]
     Active Substance: UNSPECIFIED INGREDIENT
     Indication: Eye irritation
     Route: 031
     Dates: end: 20231030
  2. allred II [Concomitant]
  3. ZYRTEC [Concomitant]
     Active Substance: CETIRIZINE HYDROCHLORIDE

REACTIONS (2)
  - Vitreous floaters [None]
  - Vitreous detachment [None]

NARRATIVE: CASE EVENT DATE: 20230117
